FAERS Safety Report 13155641 (Version 3)
Quarter: 2017Q3

REPORT INFORMATION
  Report Type: Spontaneous
  Country: DE (occurrence: DE)
  Receive Date: 20170126
  Receipt Date: 20170712
  Transmission Date: 20171127
  Serious: Yes (Death)
  Sender: FDA-Public Use
  Company Number: DE-TEVA-730504GER

PATIENT
  Age: 85 Year
  Sex: Female

DRUGS (12)
  1. CEFUROXIM [Suspect]
     Active Substance: CEFUROXIME
     Indication: RESPIRATORY TRACT INFECTION
     Dosage: 1000 MILLIGRAM DAILY;
     Route: 048
     Dates: start: 20161125, end: 20161127
  2. DEKRISTOL [Concomitant]
     Active Substance: CHOLECALCIFEROL
     Dosage: PAUSED
  3. HCT [Concomitant]
     Active Substance: HYDROCHLOROTHIAZIDE
     Dosage: PAUSED
  4. RAMIPRIL. [Concomitant]
     Active Substance: RAMIPRIL
     Dosage: PAUSED
  5. SALBUTAMOL [Concomitant]
     Active Substance: ALBUTEROL
     Dosage: PAUSED
  6. METRONIDAZOL [Concomitant]
     Active Substance: METRONIDAZOLE
     Indication: CHOLANGITIS
     Dates: start: 20161201, end: 20161205
  7. TOREM [Concomitant]
     Active Substance: TORSEMIDE
     Dosage: PAUSED
  8. CEFTRIAXON [Concomitant]
     Active Substance: CEFTRIAXONE
     Indication: CHOLANGITIS
     Dates: start: 20161201, end: 20161205
  9. MARCUMAR [Concomitant]
     Active Substance: PHENPROCOUMON
     Dosage: PAUSED
  10. SPIRIVA [Concomitant]
     Active Substance: TIOTROPIUM BROMIDE MONOHYDRATE
     Dosage: PAUSED
  11. MEMANTIN [Concomitant]
     Active Substance: MEMANTINE
     Dosage: PAUSED
  12. ALLOPURINOL. [Concomitant]
     Active Substance: ALLOPURINOL
     Dosage: PAUSED

REACTIONS (2)
  - Hepatic failure [Fatal]
  - Hepatic enzyme increased [Fatal]

NARRATIVE: CASE EVENT DATE: 20161127
